FAERS Safety Report 12879925 (Version 4)
Quarter: 2017Q1

REPORT INFORMATION
  Report Type: Spontaneous
  Country: US (occurrence: US)
  Receive Date: 20161025
  Receipt Date: 20170221
  Transmission Date: 20170428
  Serious: No
  Sender: FDA-Public Use
  Company Number: US-PFIZER INC-2016ANA00261

PATIENT
  Age: 68 Year
  Sex: Female
  Weight: 62.59 kg

DRUGS (3)
  1. KERYDIN [Suspect]
     Active Substance: TAVABOROLE
     Indication: ONYCHOMYCOSIS
     Dosage: 5% SOLUTION IN MILLILITERS, ONCE A DAY OR TWO TIMES A DAY
     Dates: start: 201512, end: 2016
  2. KERYDIN [Suspect]
     Active Substance: TAVABOROLE
     Dosage: UNK, 1X/DAY
     Route: 061
     Dates: start: 201607, end: 201608
  3. KERYDIN [Suspect]
     Active Substance: TAVABOROLE
     Dosage: UNK
     Dates: start: 201604, end: 201608

REACTIONS (10)
  - Application site exfoliation [Recovered/Resolved]
  - Application site erythema [Recovering/Resolving]
  - Drug ineffective [Unknown]
  - Laceration [Recovered/Resolved]
  - Application site haemorrhage [Recovered/Resolved]
  - Skin irritation [Unknown]
  - Wound [Recovered/Resolved]
  - Application site vesicles [Recovered/Resolved]
  - Application site swelling [Not Recovered/Not Resolved]
  - Rash pustular [Unknown]

NARRATIVE: CASE EVENT DATE: 2016
